FAERS Safety Report 5997875-1 (Version None)
Quarter: 2008Q4

REPORT INFORMATION
  Report Type: 
  Country: None (occurrence: None)
  Receive Date: 20081212
  Receipt Date: 20081124
  Transmission Date: 20090506
  Serious: No
  Sender: FDA-Public Use
  Company Number: US-ABBOTT-08P-163-0489646-00

PATIENT
  Sex: Male
  Weight: 63.56 kg

DRUGS (7)
  1. HUMIRA [Suspect]
     Indication: RHEUMATOID ARTHRITIS
     Route: 058
     Dates: end: 20081001
  2. HUMIRA [Suspect]
     Dates: start: 20060101
  3. LEFLUNOMIDE [Concomitant]
     Indication: RHEUMATOID ARTHRITIS
     Route: 048
  4. NAPROXEN SODIUM [Concomitant]
     Indication: PAIN
     Dosage: PRN FOR PAIN
  5. IBUPROFEN [Concomitant]
     Indication: PAIN
     Dosage: PRN FOR PAIN
  6. FOLIC ACID [Concomitant]
     Indication: RHEUMATOID ARTHRITIS
     Route: 048
  7. UNKNOWN PAIN PATCHES [Concomitant]
     Indication: PAIN
     Dosage: PRN FOR PAIN

REACTIONS (4)
  - ARTHRALGIA [None]
  - ATROPHY [None]
  - MUSCLE SPASMS [None]
  - MUSCULOSKELETAL PAIN [None]
